FAERS Safety Report 8409776-X (Version None)
Quarter: 2012Q2

REPORT INFORMATION
  Report Type: 
  Country: None (occurrence: None)
  Receive Date: 20120605
  Receipt Date: 20120530
  Transmission Date: 20120825
  Serious: Yes (Other)
  Sender: FDA-Public Use
  Company Number: US-BAYER-2011-107083

PATIENT
  Age: 23 Year
  Sex: Female
  Weight: 50 kg

DRUGS (2)
  1. DROSPIRENONE AND ETHINYL ESTRADIOL [Suspect]
     Indication: ORAL CONTRACEPTION
     Dosage: UNK
     Dates: start: 20090511, end: 20100601
  2. NUVARING [Concomitant]
     Dosage: UNK

REACTIONS (9)
  - BILIARY DYSKINESIA [None]
  - BILIARY COLIC [None]
  - GALLBLADDER INJURY [None]
  - ILEUS [None]
  - ABDOMINAL PAIN UPPER [None]
  - VOMITING [None]
  - INJURY [None]
  - DIARRHOEA [None]
  - NAUSEA [None]
